FAERS Safety Report 4849134-8 (Version None)
Quarter: 2005Q4

REPORT INFORMATION
  Report Type: 
  Country: None (occurrence: None)
  Receive Date: 20051209
  Receipt Date: 20051206
  Transmission Date: 20060501
  Serious: Yes (Death, Hospitalization)
  Sender: FDA-Public Use
  Company Number: DE-GLAXOSMITHKLINE-D0048202A

PATIENT
  Sex: Male

DRUGS (5)
  1. ARIXTRA [Suspect]
     Route: 058
  2. PHENYTOIN [Suspect]
     Route: 065
  3. LOW MOLECULAR WEIGHT HEPARIN [Concomitant]
     Route: 065
  4. HIRUDIN [Concomitant]
     Route: 065
  5. UNSPECIFIED MEDICATION [Concomitant]
     Indication: PROPHYLAXIS
     Route: 042

REACTIONS (3)
  - HAEMORRHAGE [None]
  - HEPATIC FAILURE [None]
  - PULMONARY HAEMORRHAGE [None]
